FAERS Safety Report 14835401 (Version 2)
Quarter: 2018Q2

REPORT INFORMATION
  Report Type: Report from Study
  Country: None (occurrence: US)
  Receive Date: 20180502
  Receipt Date: 20180516
  Transmission Date: 20180711
  Serious: Yes (Hospitalization, Other)
  Sender: FDA-Public Use
  Company Number: US-ABBVIE-18K-163-2340120-00

PATIENT
  Age: 62 Year
  Sex: Female
  Weight: 87.17 kg

DRUGS (4)
  1. HUMIRA [Suspect]
     Active Substance: ADALIMUMAB
     Indication: RHEUMATOID ARTHRITIS
     Route: 058
     Dates: start: 20150828
  2. TOPIRAMATE. [Concomitant]
     Active Substance: TOPIRAMATE
     Indication: MIGRAINE
  3. HUMIRA [Suspect]
     Active Substance: ADALIMUMAB
     Indication: PSORIATIC ARTHROPATHY
  4. METOPROLOL. [Concomitant]
     Active Substance: METOPROLOL
     Indication: ATRIAL FIBRILLATION

REACTIONS (13)
  - Gastrointestinal obstruction [Unknown]
  - Ear pain [Not Recovered/Not Resolved]
  - Pre-existing condition improved [Recovered/Resolved]
  - Vomiting [Recovered/Resolved]
  - Therapeutic response unexpected [Recovered/Resolved]
  - Tremor [Not Recovered/Not Resolved]
  - Crying [Not Recovered/Not Resolved]
  - Abdominal pain upper [Recovering/Resolving]
  - Gastric pH decreased [Unknown]
  - Gastrointestinal disorder [Unknown]
  - Abdominal adhesions [Unknown]
  - Duodenal perforation [Recovering/Resolving]
  - Anxiety [Not Recovered/Not Resolved]

NARRATIVE: CASE EVENT DATE: 2015
